FAERS Safety Report 8890792 (Version 2)
Quarter: 2012Q4

REPORT INFORMATION
  Report Type: 
  Country: PL (occurrence: PL)
  Receive Date: 20121106
  Receipt Date: 20121108
  Transmission Date: 20130627
  Serious: Yes (Hospitalization, Other)
  Sender: FDA-Public Use
  Company Number: PHHY2012PL101249

PATIENT
  Age: 30 Year
  Sex: Female

DRUGS (1)
  1. VALPROIC ACID [Suspect]
     Indication: CONVULSION
     Dosage: 300 mg, BID

REACTIONS (9)
  - Onycholysis [Unknown]
  - Nail discolouration [Unknown]
  - Cyanosis [Unknown]
  - Temperature intolerance [Unknown]
  - Skin papilloma [Recovering/Resolving]
  - Burning sensation [Unknown]
  - Peripheral coldness [Unknown]
  - Hyperhidrosis [Unknown]
  - Erythema [Unknown]
